FAERS Safety Report 21047293 (Version 1)
Quarter: 2022Q3

REPORT INFORMATION
  Report Type: Spontaneous
  Country: None (occurrence: HU)
  Receive Date: 20220706
  Receipt Date: 20220706
  Transmission Date: 20221027
  Serious: Yes (Life-Threatening, Hospitalization)
  Sender: FDA-Public Use
  Company Number: HU-Nova Laboratories Limited-2130577

PATIENT
  Age: 7 Year
  Sex: Female
  Weight: 22 kg

DRUGS (9)
  1. PURIXAN [Suspect]
     Active Substance: MERCAPTOPURINE
     Indication: Pulmonary haemosiderosis
     Route: 048
     Dates: start: 202104, end: 20210611
  2. PURIXAN [Suspect]
     Active Substance: MERCAPTOPURINE
     Route: 048
     Dates: start: 20210611, end: 20220406
  3. PREDNISOLONE [Concomitant]
     Active Substance: PREDNISOLONE
  4. CARVOL (CARVEDILOL) [Concomitant]
  5. CALCIUM [Concomitant]
     Active Substance: CALCIUM
  6. AZITHROMYCIN FORTE (AZITHROMYCIN DIHYDRATE) [Concomitant]
  7. VITAMIN D3 [Concomitant]
     Active Substance: CHOLECALCIFEROL
  8. ESOMEPRAZOLE. [Concomitant]
     Active Substance: ESOMEPRAZOLE MAGNESIUM
  9. TRIKALII CITRICI (POTASSIUM CITRATE) [Concomitant]

REACTIONS (2)
  - Bone marrow failure [Not Recovered/Not Resolved]
  - Product use in unapproved indication [None]

NARRATIVE: CASE EVENT DATE: 20220301
